FAERS Safety Report 13079908 (Version 1)
Quarter: 2017Q1

REPORT INFORMATION
  Report Type: Spontaneous
  Country: TW (occurrence: TW)
  Receive Date: 20170103
  Receipt Date: 20170103
  Transmission Date: 20170428
  Serious: Yes (Other)
  Sender: FDA-Public Use
  Company Number: TW-AMGEN-TWNSP2016179738

PATIENT
  Age: 50 Year
  Sex: Female

DRUGS (5)
  1. ARHEUMA [Concomitant]
     Dosage: 1 DF, Q2D
  2. MTX [Concomitant]
     Active Substance: METHOTREXATE SODIUM
     Dosage: 6 DF, QW
  3. ARCOXIA [Concomitant]
     Active Substance: ETORICOXIB
     Dosage: 1 DF, PRN
  4. ENBREL [Suspect]
     Active Substance: ETANERCEPT
     Indication: RHEUMATOID ARTHRITIS
     Dosage: 25 MG, BIW
     Route: 058
     Dates: start: 20160530, end: 20161128
  5. SALAZOPYRIN [Concomitant]
     Active Substance: SULFASALAZINE
     Dosage: 2 DF, BID

REACTIONS (3)
  - Swelling [Not Recovered/Not Resolved]
  - Erythema [Not Recovered/Not Resolved]
  - Wound infection bacterial [Unknown]

NARRATIVE: CASE EVENT DATE: 20161128
